FAERS Safety Report 7917846-5 (Version None)
Quarter: 2011Q4

REPORT INFORMATION
  Report Type: 
  Country: None (occurrence: None)
  Receive Date: 20111116
  Receipt Date: 20111107
  Transmission Date: 20120403
  Serious: Yes (Other)
  Sender: FDA-Public Use
  Company Number: PHEH2011US008818

PATIENT
  Sex: Female
  Weight: 66 kg

DRUGS (4)
  1. AREDIA [Suspect]
  2. SENNA [Concomitant]
  3. AMBIEN [Concomitant]
  4. COLACE [Concomitant]

REACTIONS (4)
  - LYMPHADENOPATHY [None]
  - ANAEMIA POSTOPERATIVE [None]
  - PARAESTHESIA [None]
  - HYPOALBUMINAEMIA [None]
